FAERS Safety Report 9312260 (Version 3)
Quarter: 2013Q2

REPORT INFORMATION
  Report Type: Spontaneous
  Country: US (occurrence: US)
  Receive Date: 20130528
  Receipt Date: 20130605
  Transmission Date: 20140414
  Serious: Yes (Other)
  Sender: FDA-Public Use
  Company Number: US-TEVA-407344USA

PATIENT
  Sex: Female

DRUGS (3)
  1. TRAMADOL [Suspect]
     Indication: PAIN IN EXTREMITY
     Dosage: 750 MILLIGRAM DAILY; ALSO REPORTED AS 300 MG; ON FOR 10 YEARS; TAPERING OFF
     Route: 048
  2. TRAMADOL [Suspect]
     Indication: NEURALGIA
  3. CYMBALTA [Concomitant]

REACTIONS (12)
  - Movement disorder [Unknown]
  - Drug ineffective [Unknown]
  - Drug tolerance [Unknown]
  - Nerve injury [Unknown]
  - Pain in extremity [Unknown]
  - Pain [Unknown]
  - Malaise [Unknown]
  - Asthenia [Unknown]
  - Depression [Unknown]
  - Crying [Unknown]
  - Anxiety [Unknown]
  - Adverse event [Unknown]
